FAERS Safety Report 10995361 (Version 3)
Quarter: 2016Q1

REPORT INFORMATION
  Report Type: Spontaneous
  Country: RU (occurrence: RU)
  Receive Date: 20150407
  Receipt Date: 20160224
  Transmission Date: 20160525
  Serious: Yes (Other)
  Sender: FDA-Public Use
  Company Number: RU-SYMPLMED PHARMACEUTICALS-2015SYM00079

PATIENT

DRUGS (5)
  1. LEVOTHYROXINE SODIUM. [Concomitant]
     Active Substance: LEVOTHYROXINE SODIUM
     Indication: THYROID DISORDER
     Dosage: UNK
  2. PRESTARIUM A [Suspect]
     Active Substance: PERINDOPRIL ARGININE
     Dosage: 5 MG, QD
     Route: 048
     Dates: start: 201503
  3. ARIFON [Concomitant]
     Indication: HYPERTENSION
     Dosage: 1.5 MG, QD
     Route: 048
     Dates: start: 20150228
  4. PRESTARIUM A [Suspect]
     Active Substance: PERINDOPRIL ARGININE
     Indication: HYPERTENSION
     Dosage: 5 MG, QD
     Route: 048
     Dates: start: 20150228, end: 201503
  5. PRESTARIUM A [Suspect]
     Active Substance: PERINDOPRIL ARGININE
     Dosage: 10 MG, QD
     Route: 048
     Dates: start: 201503, end: 201503

REACTIONS (3)
  - Blood pressure increased [Recovered/Resolved]
  - Blood pressure decreased [Recovered/Resolved]
  - Headache [Recovered/Resolved]

NARRATIVE: CASE EVENT DATE: 20150228
